FAERS Safety Report 21406263 (Version 1)
Quarter: 2022Q4

REPORT INFORMATION
  Report Type: Spontaneous
  Country: US (occurrence: None)
  Receive Date: 20221003
  Receipt Date: 20221003
  Transmission Date: 20230112
  Serious: Yes (Hospitalization)
  Sender: FDA-Public Use
  Company Number: None

PATIENT
  Age: 51 Year
  Sex: Male

DRUGS (2)
  1. STELARA [Suspect]
     Active Substance: USTEKINUMAB
     Indication: Crohn^s disease
     Dosage: OTHER FREQUENCY : EVERY 8 WEEKS;?
     Route: 058
     Dates: start: 20220412
  2. STELARA [Suspect]
     Active Substance: USTEKINUMAB
     Dosage: OTHER QUANTITY : 1 ML (90 MG);?OTHER FREQUENCY : EVERY 8 WEEKS;?
     Route: 058

REACTIONS (2)
  - Haematological infection [None]
  - Nephrolithiasis [None]

NARRATIVE: CASE EVENT DATE: 20220922
